FAERS Safety Report 8986771 (Version 3)
Quarter: 2013Q1

REPORT INFORMATION
  Report Type: Spontaneous
  Country: PT (occurrence: PT)
  Receive Date: 20121226
  Receipt Date: 20130206
  Transmission Date: 20140127
  Serious: Yes (Hospitalization)
  Sender: FDA-Public Use
  Company Number: PT-ROCHE-1172797

PATIENT
  Age: 25 Year
  Sex: Female

DRUGS (2)
  1. MABTHERA [Suspect]
     Indication: LUPUS NEPHRITIS
     Route: 042
     Dates: start: 20120612, end: 20120626
  2. MABTHERA [Suspect]
     Route: 065
     Dates: start: 20130122

REACTIONS (3)
  - Pulmonary oedema [Recovered/Resolved]
  - Cardiac failure [Recovered/Resolved]
  - No therapeutic response [Unknown]
